FAERS Safety Report 22138142 (Version 2)
Quarter: 2023Q2

REPORT INFORMATION
  Report Type: Report from Study
  Country: CZ (occurrence: CZ)
  Receive Date: 20230325
  Receipt Date: 20230412
  Transmission Date: 20230721
  Serious: Yes (Other)
  Sender: FDA-Public Use
  Company Number: CZ-002147023-NVSC2023CZ065696

PATIENT
  Age: 45 Year
  Sex: Male
  Weight: 89 kg

DRUGS (5)
  1. KESIMPTA [Suspect]
     Active Substance: OFATUMUMAB
     Indication: Multiple sclerosis
     Dosage: 20 MG (1X A WEEK FOR 3 WEEKS, ONE WEEK BREAK, ONE WEEKLY ADMINISTRATION, THEN 1X EVERY CALENDAR MONT
     Route: 058
     Dates: start: 20230215
  2. KESIMPTA [Suspect]
     Active Substance: OFATUMUMAB
     Dosage: UNK (SECOND APPLICATION)
     Route: 058
     Dates: start: 20230301
  3. KESIMPTA [Suspect]
     Active Substance: OFATUMUMAB
     Dosage: UNK (THIRD APPLICATION)
     Route: 058
     Dates: start: 20230315
  4. PARALEN [Concomitant]
     Indication: Premedication
     Dosage: 500 MG
     Route: 065
     Dates: start: 20230215, end: 20230215
  5. VIGANTOL [Concomitant]
     Indication: Product used for unknown indication
     Dosage: 28 DRP, QW (ON WEDNESDAY)
     Route: 065
     Dates: start: 20230215

REACTIONS (12)
  - Muscle twitching [Recovered/Resolved]
  - Muscle spasms [Recovered/Resolved]
  - Speech disorder [Recovered/Resolved]
  - Muscle twitching [Recovered/Resolved]
  - Cervical spinal stenosis [Recovered/Resolved]
  - Vertigo [Recovered/Resolved]
  - Pyrexia [Recovered/Resolved]
  - Fatigue [Recovered/Resolved]
  - Chills [Recovered/Resolved]
  - Chills [Recovered/Resolved]
  - Infrequent bowel movements [Recovered/Resolved]
  - Chills [Recovered/Resolved]

NARRATIVE: CASE EVENT DATE: 20230215
